FAERS Safety Report 4388649-6 (Version None)
Quarter: 2004Q2

REPORT INFORMATION
  Report Type: 
  Country: None (occurrence: None)
  Receive Date: 20040624
  Receipt Date: 20040615
  Transmission Date: 20050107
  Serious: Yes (Hospitalization)
  Sender: FDA-Public Use
  Company Number: SE-SHR-03-016085

PATIENT
  Age: 44 Year
  Sex: Female

DRUGS (1)
  1. LEVONORGESTREL [Suspect]
     Dosage: 20 UG/DAY, CONT, INTRA-UTERINE
     Route: 015
     Dates: start: 20031010, end: 20031010

REACTIONS (3)
  - OVARIAN CYST [None]
  - TUBO-OVARIAN ABSCESS [None]
  - UTERINE INFECTION [None]
